FAERS Safety Report 14330525 (Version 4)
Quarter: 2018Q1

REPORT INFORMATION
  Report Type: Spontaneous
  Country: US (occurrence: US)
  Receive Date: 20171227
  Receipt Date: 20180207
  Transmission Date: 20180509
  Serious: Yes (Hospitalization, Other)
  Sender: FDA-Public Use
  Company Number: US-BEH-2017086129

PATIENT
  Age: 30 Year
  Sex: Female

DRUGS (1)
  1. HAEMATE P [Suspect]
     Active Substance: ANTIHEMOPHILIC FACTOR HUMAN
     Indication: VON WILLEBRAND^S DISEASE
     Dosage: 2000 RCOF UNITS, PRN
     Route: 042
     Dates: start: 20160107

REACTIONS (6)
  - Menstruation normal [Unknown]
  - Sepsis [Unknown]
  - Medical device site haemorrhage [Unknown]
  - No adverse event [Unknown]
  - Actinomycosis [Unknown]
  - Bacteraemia [Unknown]
